FAERS Safety Report 8480129-1 (Version None)
Quarter: 2012Q2

REPORT INFORMATION
  Report Type: 
  Country: None (occurrence: None)
  Receive Date: 20120629
  Receipt Date: 20120620
  Transmission Date: 20120825
  Serious: Yes (Hospitalization, Other)
  Sender: FDA-Public Use
  Company Number: CL-ROCHE-1072000

PATIENT
  Sex: Male

DRUGS (2)
  1. XELODA [Suspect]
     Indication: COLON CANCER
     Dosage: 1500 MG IN THE MORNING AND 2000 MG AT NIGHT
     Route: 048
     Dates: start: 20120420, end: 20120614
  2. AVASTIN [Suspect]
     Indication: COLON CANCER
     Route: 042
     Dates: start: 20120420, end: 20120614

REACTIONS (8)
  - METASTASES TO STOMACH [None]
  - NAUSEA [None]
  - HYPOAESTHESIA [None]
  - MYALGIA [None]
  - THROMBOSIS [None]
  - DIARRHOEA [None]
  - DEPRESSED MOOD [None]
  - VOMITING [None]
